FAERS Safety Report 18488931 (Version 2)
Quarter: 2020Q4

REPORT INFORMATION
  Report Type: Report from Study
  Country: US (occurrence: US)
  Receive Date: 20201111
  Receipt Date: 20201113
  Transmission Date: 20210114
  Serious: Yes (Death, Hospitalization, Other)
  Sender: FDA-Public Use
  Company Number: US-ASTRAZENECA-2020SF46404

PATIENT
  Sex: Female
  Weight: 74.4 kg

DRUGS (2)
  1. SYMBICORT [Suspect]
     Active Substance: BUDESONIDE\FORMOTEROL FUMARATE DIHYDRATE
     Indication: DYSPNOEA
     Dosage: 160 UG/INHAL, TWO TIMES A DAY
     Route: 055
     Dates: start: 20200522
  2. SYMBICORT [Suspect]
     Active Substance: BUDESONIDE\FORMOTEROL FUMARATE DIHYDRATE
     Indication: ASTHMA
     Dosage: 160 UG/INHAL, TWO TIMES A DAY
     Route: 055
     Dates: start: 20200522

REACTIONS (3)
  - Peritonitis [Not Recovered/Not Resolved]
  - Post procedural complication [Fatal]
  - Breast cancer [Unknown]
